FAERS Safety Report 9332884 (Version 2)
Quarter: 2014Q2

REPORT INFORMATION
  Report Type: Spontaneous
  Country: IT (occurrence: IT)
  Receive Date: 20130606
  Receipt Date: 20140404
  Transmission Date: 20141212
  Serious: Yes (Death, Hospitalization)
  Sender: FDA-Public Use
  Company Number: IT-BRISTOL-MYERS SQUIBB COMPANY-18963777

PATIENT
  Age: 84 Year
  Sex: Male

DRUGS (1)
  1. COUMADIN TABS 5 MG [Suspect]
     Indication: AORTIC VALVE REPLACEMENT
     Dosage: UNITL 21-MAY-2013,
     Route: 048
     Dates: start: 20130422

REACTIONS (2)
  - Cerebral haemorrhage [Fatal]
  - Head injury [Unknown]
